FAERS Safety Report 5005569-4 (Version None)
Quarter: 2006Q2

REPORT INFORMATION
  Report Type: 
  Country: None (occurrence: None)
  Receive Date: 20060512
  Receipt Date: 20060508
  Transmission Date: 20061013
  Serious: Yes (Death, Other)
  Sender: FDA-Public Use
  Company Number: 200610614BVD

PATIENT
  Sex: Female

DRUGS (2)
  1. AVELOX [Suspect]
     Indication: SKIN INFECTION
     Dosage: INTRAVENOUS
     Route: 042
  2. AVELOX [Suspect]
     Indication: SOFT TISSUE INFECTION
     Dosage: INTRAVENOUS
     Route: 042

REACTIONS (2)
  - EMPYEMA [None]
  - SEPSIS [None]
